FAERS Safety Report 24353531 (Version 2)
Quarter: 2024Q4

REPORT INFORMATION
  Report Type: Spontaneous
  Country: US (occurrence: US)
  Receive Date: 20240923
  Receipt Date: 20241016
  Transmission Date: 20250115
  Serious: No
  Sender: PFIZER
  Company Number: US-PFIZER INC-202400260905

PATIENT
  Age: 65 Year
  Sex: Female
  Weight: 78.186 kg

DRUGS (2)
  1. XELJANZ XR [Suspect]
     Active Substance: TOFACITINIB CITRATE
     Indication: Rheumatoid arthritis
     Dosage: 11 MG, DAILY (TAKE 1 TABLET DAILY)
     Route: 048
     Dates: start: 2024
  2. XELJANZ XR [Suspect]
     Active Substance: TOFACITINIB CITRATE
     Dosage: 11 MG EVERY OTHER DAY
     Route: 048
     Dates: start: 2024, end: 20240925

REACTIONS (3)
  - Lymph nodes scan abnormal [Recovering/Resolving]
  - Drug ineffective [Recovered/Resolved]
  - Off label use [Recovering/Resolving]

NARRATIVE: CASE EVENT DATE: 20240101
